FAERS Safety Report 9665664 (Version 5)
Quarter: 2013Q4

REPORT INFORMATION
  Report Type: Report from Study
  Country: CA (occurrence: CA)
  Receive Date: 20131104
  Receipt Date: 20131221
  Transmission Date: 20140711
  Serious: Yes (Death, Hospitalization, Other)
  Sender: FDA-Public Use
  Company Number: PHHY2012CA024103

PATIENT
  Age: 55 Year
  Sex: Male

DRUGS (2)
  1. ZOMETA [Suspect]
     Indication: RENAL CELL CARCINOMA
     Dosage: 4 MG EVERY 8 WEEKS
     Route: 042
     Dates: start: 20111116
  2. ZOMETA [Suspect]
     Dosage: 4 MG, EVERY 2 MONTHS
     Route: 042
     Dates: end: 20131028

REACTIONS (9)
  - Death [Fatal]
  - Lung disorder [Unknown]
  - Gait disturbance [Unknown]
  - Metastases to kidney [Unknown]
  - Muscular weakness [Unknown]
  - Body temperature decreased [Unknown]
  - Heart rate increased [Unknown]
  - Blood pressure increased [Unknown]
  - Malaise [Unknown]
